FAERS Safety Report 24735357 (Version 1)
Quarter: 2024Q4

REPORT INFORMATION
  Report Type: Spontaneous
  Country: US (occurrence: US)
  Receive Date: 20241215
  Receipt Date: 20241215
  Transmission Date: 20250115
  Serious: No
  Sender: SUNOVION
  Company Number: US-SMPA-2024SPA005622AA

PATIENT

DRUGS (2)
  1. GEMTESA [Suspect]
     Active Substance: VIBEGRON
     Route: 048
  2. TROSPIUM [Concomitant]
     Active Substance: TROSPIUM
     Dosage: AT NIGHTTIME

REACTIONS (1)
  - Drug ineffective [Unknown]
